FAERS Safety Report 5594200-5 (Version None)
Quarter: 2008Q1

REPORT INFORMATION
  Report Type: 
  Country: None (occurrence: None)
  Receive Date: 20080115
  Receipt Date: 20080111
  Transmission Date: 20080703
  Serious: Yes (Death, Life-Threatening)
  Sender: FDA-Public Use
  Company Number: 062-C5013-07061630

PATIENT
  Age: 78 Year
  Weight: 56 kg

DRUGS (7)
  1. CC-5013  (LENALIDOMIDE) [Suspect]
     Indication: MULTIPLE MYELOMA
     Dosage: 25 MG, DAY 1-21, ORAL
     Route: 048
     Dates: start: 20070614, end: 20070622
  2. DEXAMETHASONE TAB [Suspect]
     Indication: MULTIPLE MYELOMA
     Dosage: 40 M, DAY 1-4, 9-12, 17-20, ORAL
     Route: 048
     Dates: start: 20070614, end: 20070617
  3. DURAGESIC-100 [Concomitant]
  4. FRUOSEMIDE                       (FRUOSEMIDE) [Concomitant]
  5. AMARYL [Concomitant]
  6. OMEPRAZOLE [Concomitant]
  7. MORPHINE SULFATE [Concomitant]

REACTIONS (22)
  - AZOTAEMIA [None]
  - COMA [None]
  - CONFUSIONAL STATE [None]
  - DYSPHAGIA [None]
  - GENERAL PHYSICAL HEALTH DETERIORATION [None]
  - HAEMOGLOBIN DECREASED [None]
  - IMMUNOGLOBULINS DECREASED [None]
  - LOSS OF CONSCIOUSNESS [None]
  - LYMPHOCYTE PERCENTAGE DECREASED [None]
  - NAUSEA [None]
  - NEUTROPHIL PERCENTAGE INCREASED [None]
  - NIGHTMARE [None]
  - ORAL INTAKE REDUCED [None]
  - PATHOLOGICAL FRACTURE [None]
  - PROTEIN TOTAL DECREASED [None]
  - PSYCHOTIC DISORDER [None]
  - REFUSAL OF TREATMENT BY PATIENT [None]
  - RENAL FAILURE ACUTE [None]
  - RIB FRACTURE [None]
  - STUPOR [None]
  - THROMBOCYTOPENIA [None]
  - TUMOUR LYSIS SYNDROME [None]
